FAERS Safety Report 4995945-8 (Version None)
Quarter: 2006Q2

REPORT INFORMATION
  Report Type: 
  Country: None (occurrence: None)
  Receive Date: 20060504
  Receipt Date: 20060421
  Transmission Date: 20061013
  Serious: Yes (Life-Threatening)
  Sender: FDA-Public Use
  Company Number: HQWYE733729NOV05

PATIENT
  Age: 43 Year
  Sex: Female

DRUGS (16)
  1. MYLOTARG [Suspect]
     Indication: ACUTE MYELOID LEUKAEMIA RECURRENT
     Dosage: A SINGLE 9 MG/M^2 DOSE INTRAVENOUS DRIP
     Route: 041
     Dates: start: 20051006, end: 20051006
  2. MYLOTARG [Suspect]
     Indication: ACUTE MYELOID LEUKAEMIA RECURRENT
     Dosage: A SINGLE 9 MG/M^2 DOSE INTRAVENOUS DRIP
     Route: 041
     Dates: start: 20051027, end: 20051027
  3. MYLOTARG [Suspect]
     Indication: ACUTE MYELOID LEUKAEMIA RECURRENT
     Dosage: A SINGLE 9 MG/M^2 DOSE INTRAVENOUS DRIP
     Route: 041
     Dates: start: 20051208, end: 20051213
  4. MYLOTARG [Suspect]
     Indication: ACUTE MYELOID LEUKAEMIA RECURRENT
     Dosage: A SINGLE 9 MG/M^2 DOSE INTRAVENOUS DRIP
     Route: 041
     Dates: start: 20051216, end: 20051216
  5. BESTATIN (UBENIMEX) [Concomitant]
  6. MEROPEN (MEROPENEM) [Concomitant]
  7. VANCOMYCIN HYDROCHLORIDE [Concomitant]
  8. PRODIF (FOSFLUCONAZOLE) [Concomitant]
  9. ZOVIRAX [Concomitant]
  10. OMEPRAZOLE [Concomitant]
  11. FOY (GABEXATE MESILATE) [Concomitant]
  12. MORPHINE [Concomitant]
  13. UNSPECIFIED ANTIBIOTIC (UNSPECIFIED ANTIBIOTIC) [Concomitant]
  14. TARGOCID [Concomitant]
  15. ITRACONAZOLE [Concomitant]
  16. URSO 250 [Concomitant]

REACTIONS (11)
  - ACUTE MYELOID LEUKAEMIA [None]
  - AGRANULOCYTOSIS [None]
  - ANAEMIA [None]
  - BLOOD ALKALINE PHOSPHATASE INCREASED [None]
  - BLOOD BILIRUBIN INCREASED [None]
  - BODY TEMPERATURE INCREASED [None]
  - MALIGNANT NEOPLASM PROGRESSION [None]
  - MONOCYTE PERCENTAGE DECREASED [None]
  - NEUTROPHIL PERCENTAGE DECREASED [None]
  - PLATELET COUNT DECREASED [None]
  - WHITE BLOOD CELL COUNT DECREASED [None]
